FAERS Safety Report 4501778-9 (Version None)
Quarter: 2004Q3

REPORT INFORMATION
  Report Type: 
  Country: None (occurrence: None)
  Receive Date: 20040928
  Receipt Date: 20040719
  Transmission Date: 20050211
  Serious: No
  Sender: FDA-Public Use
  Company Number: 04P-163-0249712-00

PATIENT
  Age: 68 Year
  Sex: Female
  Weight: 77.1115 kg

DRUGS (8)
  1. HUMIRA [Suspect]
     Indication: RHEUMATOID ARTHRITIS
     Dosage: 40 MG, 1 IN 2 WK, SUBCUTANEOUS
     Route: 058
     Dates: start: 20031201, end: 20040501
  2. PREDNISONE [Concomitant]
  3. LEFLUNOMIDE [Concomitant]
  4. LOTREL [Concomitant]
  5. ATENOLOL [Concomitant]
  6. CALCIUM [Concomitant]
  7. MULTIVITAMIN [Concomitant]
  8. FOLIC ACID [Concomitant]

REACTIONS (7)
  - COUGH [None]
  - INJECTION SITE RASH [None]
  - PHARYNGOLARYNGEAL PAIN [None]
  - PRURITUS GENERALISED [None]
  - RASH GENERALISED [None]
  - RHINORRHOEA [None]
  - URTICARIA [None]
